FAERS Safety Report 13561516 (Version 2)
Quarter: 2017Q3

REPORT INFORMATION
  Report Type: Spontaneous
  Country: US (occurrence: US)
  Receive Date: 20170518
  Receipt Date: 20170922
  Transmission Date: 20171127
  Serious: Yes (Hospitalization)
  Sender: FDA-Public Use
  Company Number: US-PFIZER INC-2017211891

PATIENT
  Age: 55 Year
  Sex: Male
  Weight: 93 kg

DRUGS (9)
  1. RAPAMUNE [Suspect]
     Active Substance: SIROLIMUS
     Indication: PROPHYLAXIS AGAINST TRANSPLANT REJECTION
     Dosage: UNK
     Route: 048
     Dates: start: 201703
  2. MYFORTIC [Concomitant]
     Active Substance: MYCOPHENOLATE SODIUM
     Indication: IMMUNOSUPPRESSION
     Dosage: 720 MG, 2X/DAY, TWO PILLS IN MORNING AND TWO PILLS AT NIGHT
     Dates: start: 20131203
  3. NEORAL [Suspect]
     Active Substance: CYCLOSPORINE
     Indication: LIVER TRANSPLANT
  4. RAPAMUNE [Suspect]
     Active Substance: SIROLIMUS
     Indication: RENAL DISORDER
     Dosage: UNK, 3 TABLETS/DAY
  5. RAPAMUNE [Suspect]
     Active Substance: SIROLIMUS
     Dosage: 2 MG, 2X/DAY
     Dates: end: 201706
  6. NEORAL [Suspect]
     Active Substance: CYCLOSPORINE
     Indication: PROPHYLAXIS AGAINST TRANSPLANT REJECTION
     Dosage: 100 MG, 2X/DAY
     Route: 048
     Dates: start: 20131203
  7. LOSARTAN. [Concomitant]
     Active Substance: LOSARTAN
     Indication: BLOOD PRESSURE MEASUREMENT
     Dosage: 25 MG, 1X/DAY, AT 12 NOON
     Route: 048
     Dates: start: 2015
  8. KEPPRA [Concomitant]
     Active Substance: LEVETIRACETAM
     Indication: SEIZURE
     Dosage: 250 MG, 1X/DAY, EVERY NIGHT
     Route: 048
     Dates: start: 20130723
  9. DOCUSATE SODIUM. [Concomitant]
     Active Substance: DOCUSATE SODIUM
     Indication: LAXATIVE SUPPORTIVE CARE
     Dosage: UNK
     Dates: start: 20131203, end: 20170510

REACTIONS (9)
  - Drug ineffective for unapproved indication [Recovered/Resolved]
  - Diarrhoea [Recovered/Resolved]
  - Sleep disorder [Recovering/Resolving]
  - Dyspnoea [Recovered/Resolved]
  - Gastrointestinal sounds abnormal [Recovered/Resolved]
  - Rash pruritic [Recovered/Resolved]
  - Decreased appetite [Recovered/Resolved]
  - Lip ulceration [Recovered/Resolved]
  - Asthenia [Recovering/Resolving]

NARRATIVE: CASE EVENT DATE: 201703
